FAERS Safety Report 6717300-2 (Version None)
Quarter: 2010Q2

REPORT INFORMATION
  Report Type: 
  Country: None (occurrence: None)
  Receive Date: 20100505
  Receipt Date: 20100420
  Transmission Date: 20101027
  Serious: Yes (Other)
  Sender: FDA-Public Use
  Company Number: URSO-2010-042

PATIENT
  Sex: Female

DRUGS (4)
  1. URSODIOL [Suspect]
     Indication: HEPATITIS CHOLESTATIC
     Dosage: 250MG TID ORAL
     Route: 048
     Dates: start: 20100311, end: 20100316
  2. VITAMIN K1 [Suspect]
     Indication: PROTHROMBIN TIME
     Dosage: 20MG QD ORAL
     Route: 048
     Dates: start: 20100311, end: 20100316
  3. CACIT D3 (CALCIUM CARBONATE/ CHOLECALCIFEROL) [Suspect]
     Indication: HYPOCALCAEMIA
     Dosage: 1 DF QD ORAL
     Route: 048
     Dates: start: 20100311, end: 20100316
  4. LEVOTHYROXINE SODIUM [Concomitant]

REACTIONS (3)
  - AGRANULOCYTOSIS [None]
  - ESCHERICHIA URINARY TRACT INFECTION [None]
  - URINARY TRACT INFECTION ENTEROCOCCAL [None]
